FAERS Safety Report 8851135 (Version 1)
Quarter: 2012Q4

REPORT INFORMATION
  Report Type: 
  Country: GB (occurrence: GB)
  Receive Date: 20121019
  Receipt Date: 20121019
  Transmission Date: 20130627
  Serious: Yes (Hospitalization)
  Sender: FDA-Public Use
  Company Number: GB-JNJFOC-20121009845

PATIENT
  Age: 68 Year
  Sex: Female

DRUGS (1)
  1. STELARA [Suspect]
     Indication: PRODUCT USED FOR UNKNOWN INDICATION
     Dosage: last date of administration of ustekinumab was 11-Oct-12.
     Route: 058
     Dates: end: 20121011

REACTIONS (2)
  - Stent removal [Recovered/Resolved]
  - Drug effect decreased [Unknown]
